FAERS Safety Report 8143527-1 (Version None)
Quarter: 2012Q1

REPORT INFORMATION
  Report Type: 
  Country: None (occurrence: None)
  Receive Date: 20120217
  Receipt Date: 20120206
  Transmission Date: 20120608
  Serious: Yes (Hospitalization)
  Sender: FDA-Public Use
  Company Number: US-PERRIGO-12US000983

PATIENT
  Age: 70 Year
  Sex: Male

DRUGS (1)
  1. TESTOSTERONE ENANTHATE [Suspect]
     Indication: BLOOD TESTOSTERONE FREE DECREASED
     Dosage: 400 MG, MONTHLY
     Route: 030
     Dates: start: 20080301, end: 20080601

REACTIONS (2)
  - OSTEONECROSIS [None]
  - ARTHRALGIA [None]
